FAERS Safety Report 5376180-0 (Version None)
Quarter: 2007Q3

REPORT INFORMATION
  Report Type: 
  Country: None (occurrence: None)
  Receive Date: 20070702
  Receipt Date: 20070625
  Transmission Date: 20080115
  Serious: Yes (Hospitalization)
  Sender: FDA-Public Use
  Company Number: FR-ASTRAZENECA-2007CG00965

PATIENT
  Age: 24270 Day
  Sex: Female

DRUGS (7)
  1. DIPRIVAN [Suspect]
     Route: 042
     Dates: start: 20070323, end: 20070323
  2. PROFENID [Suspect]
     Route: 042
     Dates: start: 20070323, end: 20070323
  3. DALACIN [Suspect]
     Route: 042
     Dates: start: 20070323, end: 20070323
  4. HYPNOVEL [Suspect]
     Route: 042
     Dates: start: 20070323, end: 20070323
  5. SUFENTANIL CITRATE [Suspect]
     Route: 042
     Dates: start: 20070323, end: 20070323
  6. SEVORANE [Suspect]
     Route: 055
     Dates: start: 20070323, end: 20070323
  7. LEVOTHYROXINE SODIUM [Concomitant]

REACTIONS (3)
  - ACUTE GENERALISED EXANTHEMATOUS PUSTULOSIS [None]
  - NEUTROPHIL COUNT INCREASED [None]
  - PYREXIA [None]
